FAERS Safety Report 22150254 (Version 1)
Quarter: 2023Q1

REPORT INFORMATION
  Report Type: Spontaneous
  Country: JP (occurrence: JP)
  Receive Date: 20230329
  Receipt Date: 20230329
  Transmission Date: 20230418
  Serious: Yes (Other)
  Sender: FDA-Public Use
  Company Number: JP-JNJFOC-20230364064

PATIENT
  Age: 64 Year
  Sex: Male

DRUGS (12)
  1. OPSUMIT [Suspect]
     Active Substance: MACITENTAN
     Indication: Pulmonary hypertension
     Dosage: DOSE UNKNOWN
     Route: 048
  2. OPSUMIT [Suspect]
     Active Substance: MACITENTAN
     Indication: Pulmonary hypertension
     Dosage: DOSE UNKNOWN, GRADUALLY INCREASED
     Route: 048
  3. SILDENAFIL CITRATE [Concomitant]
     Active Substance: SILDENAFIL CITRATE
     Dosage: DOSE UNKNOWN
     Route: 048
  4. SILDENAFIL CITRATE [Concomitant]
     Active Substance: SILDENAFIL CITRATE
     Dosage: DOSE UNKNOWN, GRADUALLY INCREASED
     Route: 048
  5. PREDNISOLONE [Concomitant]
     Active Substance: PREDNISOLONE
     Route: 065
  6. TOCILIZUMAB [Concomitant]
     Active Substance: TOCILIZUMAB
     Route: 065
  7. MYCOPHENOLATE MOFETIL [Concomitant]
     Active Substance: MYCOPHENOLATE MOFETIL
     Dosage: DOSE UNKNOWN
     Route: 048
  8. OXYGEN [Concomitant]
     Active Substance: OXYGEN
     Dosage: 3L/MIN NASAL
     Route: 055
  9. OXYGEN [Concomitant]
     Active Substance: OXYGEN
     Dosage: 3L/MIN OXYMIZER
     Route: 055
  10. OXYGEN [Concomitant]
     Active Substance: OXYGEN
     Dosage: 5L/MIN OXYMIZER
     Route: 055
  11. ADRENAL [Concomitant]
     Active Substance: EPINEPHRINE
     Dosage: DOSE UNKNOWN
     Route: 065
  12. ADRENAL [Concomitant]
     Active Substance: EPINEPHRINE
     Dosage: DOSE UNKNOWN, GRADUALLY DECREASED
     Route: 065

REACTIONS (1)
  - Hypoxia [Unknown]
